FAERS Safety Report 16591333 (Version 1)
Quarter: 2019Q3

REPORT INFORMATION
  Report Type: Spontaneous
  Country: ES (occurrence: ES)
  Receive Date: 20190718
  Receipt Date: 20190718
  Transmission Date: 20191004
  Serious: Yes (Other)
  Sender: FDA-Public Use
  Company Number: ES-PFIZER INC-2019300265

PATIENT
  Age: 60 Year
  Sex: Male

DRUGS (11)
  1. SOMATULINE AUTOGEL [Concomitant]
     Active Substance: LANREOTIDE ACETATE
     Dosage: 120 MG, EVERY 28 DAYS
     Route: 058
  2. NOLOTIL [METAMIZOLE MAGNESIUM] [Concomitant]
     Active Substance: METAMIZOLE MAGNESIUM
     Dosage: 575 MG, EVERY 8 HOUR
     Route: 048
     Dates: start: 20160503
  3. SEVREDOL [Concomitant]
     Active Substance: MORPHINE
     Dosage: 20 MG, EVERY 24 HOUR
     Route: 048
  4. SUTENT [Suspect]
     Active Substance: SUNITINIB MALATE
     Indication: PANCREATIC NEUROENDOCRINE TUMOUR METASTATIC
     Dosage: 37.5 MG (25 MG (STRENGTH 25 MG) + 12.5 MG), 1X/DAY
     Route: 048
     Dates: start: 201604, end: 20190503
  5. FORTECORTIN [DEXAMETHASONE ACETATE] [Concomitant]
     Active Substance: DEXAMETHASONE ACETATE
     Dosage: 1 MG, 1X/DAY
     Route: 048
  6. ENALAPRIL UXAFARMA [Concomitant]
     Dosage: 10 MG, EVERY 8 HOUR
     Route: 048
     Dates: start: 20190115
  7. OXYCONTIN [Concomitant]
     Active Substance: OXYCODONE HYDROCHLORIDE
     Dosage: 40 MG, EVERY 12 HOUR
     Route: 048
     Dates: start: 20190115
  8. URSOBILANE [Concomitant]
     Dosage: 300 MG, EVERY 8 HOUR
     Route: 048
     Dates: start: 20150826
  9. FORTECORTIN [DEXAMETHASONE ACETATE] [Concomitant]
     Active Substance: DEXAMETHASONE ACETATE
     Dosage: 4 MG, 1X/DAY
     Route: 048
  10. OMEPRAZOL [Concomitant]
     Active Substance: OMEPRAZOLE
     Dosage: 20 MG, EVERY 12 HOUR
     Route: 048
     Dates: start: 20150826
  11. OXYCONTIN [Concomitant]
     Active Substance: OXYCODONE HYDROCHLORIDE
     Dosage: 20 MG, EVERY 12 HOUR
     Route: 048
     Dates: start: 20190115

REACTIONS (2)
  - Second primary malignancy [Not Recovered/Not Resolved]
  - Chronic myeloid leukaemia [Not Recovered/Not Resolved]

NARRATIVE: CASE EVENT DATE: 201901
